FAERS Safety Report 6266704-3 (Version None)
Quarter: 2009Q3

REPORT INFORMATION
  Report Type: 
  Country: None (occurrence: None)
  Receive Date: 20090714
  Receipt Date: 20071128
  Transmission Date: 20100115
  Serious: Yes (Other)
  Sender: FDA-Public Use
  Company Number: US-ASTRAZENECA-2007UW14331

PATIENT
  Age: 17545 Day
  Sex: Male

DRUGS (12)
  1. SEROQUEL [Suspect]
     Indication: DEPRESSION
     Dosage: 100 MG
     Route: 048
     Dates: start: 20040401
  2. SEROQUEL [Suspect]
     Dosage: 100 MG - 400 MG
     Route: 048
     Dates: start: 20050101
  3. NEURONTIN [Concomitant]
  4. ZOFRAN [Concomitant]
  5. GLUCOPHAGE [Concomitant]
  6. LORTAB [Concomitant]
  7. PRINIVIL [Concomitant]
  8. PROPOFOL [Concomitant]
  9. LOPRESSOR [Concomitant]
  10. GENTAMICIN [Concomitant]
  11. INSULIN [Concomitant]
  12. ZOSYN [Concomitant]

REACTIONS (3)
  - DIABETES MELLITUS INADEQUATE CONTROL [None]
  - NEUROPATHY PERIPHERAL [None]
  - TYPE 2 DIABETES MELLITUS [None]
